FAERS Safety Report 8433711-1 (Version None)
Quarter: 2012Q2

REPORT INFORMATION
  Report Type: 
  Country: None (occurrence: None)
  Receive Date: 20120613
  Receipt Date: 20120603
  Transmission Date: 20120825
  Serious: Yes (Death, Life-Threatening)
  Sender: FDA-Public Use
  Company Number: ES-JNJFOC-20120602762

PATIENT
  Age: 77 Year
  Sex: Male

DRUGS (3)
  1. INFLIXIMAB, RECOMBINANT [Suspect]
     Indication: ANKYLOSING SPONDYLITIS
     Dosage: DOSE REPORTED AS ^5^
     Route: 042
     Dates: start: 20050418, end: 20090201
  2. NSAID [Concomitant]
  3. OMEPRAZOLE [Concomitant]

REACTIONS (1)
  - LUNG SQUAMOUS CELL CARCINOMA STAGE IV [None]
